FAERS Safety Report 6009456-4 (Version None)
Quarter: 2008Q4

REPORT INFORMATION
  Report Type: 
  Country: None (occurrence: None)
  Receive Date: 20081217
  Receipt Date: 20080926
  Transmission Date: 20090506
  Serious: No
  Sender: FDA-Public Use
  Company Number: US-BAYER-200834798NA

PATIENT
  Sex: Female

DRUGS (2)
  1. YAZ [Suspect]
     Indication: DRUG USE FOR UNKNOWN INDICATION
     Route: 048
     Dates: start: 20080912, end: 20080913
  2. YAZ [Suspect]
     Route: 048
     Dates: start: 20080915

REACTIONS (3)
  - AMENORRHOEA [None]
  - METRORRHAGIA [None]
  - NO ADVERSE EVENT [None]
